FAERS Safety Report 5267230-0 (Version None)
Quarter: 2007Q1

REPORT INFORMATION
  Report Type: 
  Country: None (occurrence: None)
  Receive Date: 20070316
  Receipt Date: 20070312
  Transmission Date: 20070707
  Serious: Yes (Death)
  Sender: FDA-Public Use
  Company Number: GB-ROCHE-487535

PATIENT
  Age: 22 Year
  Sex: Male

DRUGS (1)
  1. ROACCUTANE [Suspect]
     Indication: ACNE
     Route: 065

REACTIONS (3)
  - COMPLETED SUICIDE [None]
  - DEPRESSION [None]
  - SCHIZOPHRENIA [None]
